FAERS Safety Report 6552911-9 (Version None)
Quarter: 2010Q1

REPORT INFORMATION
  Report Type: 
  Country: None (occurrence: None)
  Receive Date: 20100122
  Receipt Date: 20100113
  Transmission Date: 20100710
  Serious: Yes (Death)
  Sender: FDA-Public Use
  Company Number: 2010SP003081

PATIENT
  Age: 79 Year
  Sex: Male

DRUGS (5)
  1. MIRTAZAPINE [Suspect]
     Indication: DEPRESSION
     Dosage: 15 MG;QD;PO
     Route: 048
     Dates: start: 20090918
  2. SULPIRIDE [Concomitant]
  3. TRIAZOLAM [Concomitant]
  4. ESTAZOLAM [Concomitant]
  5. PAXIL [Concomitant]

REACTIONS (1)
  - COMPLETED SUICIDE [None]
